FAERS Safety Report 8172077-1 (Version None)
Quarter: 2012Q1

REPORT INFORMATION
  Report Type: 
  Country: None (occurrence: None)
  Receive Date: 20120228
  Receipt Date: 20120222
  Transmission Date: 20120608
  Serious: Yes (Hospitalization, Other)
  Sender: FDA-Public Use
  Company Number: US-PFIZER INC-2012049423

PATIENT
  Sex: Male

DRUGS (5)
  1. SURFAK [Concomitant]
     Dosage: 240 MG, 1X/DAY
     Route: 048
     Dates: start: 19971201
  2. PROCARDIA [Concomitant]
     Dosage: UNK, EVERY 4 HOURS
     Route: 048
     Dates: start: 19971201
  3. DILANTIN [Suspect]
     Indication: SUBARACHNOID HAEMORRHAGE
     Dosage: 200 MG, 2X/DAY
     Route: 048
     Dates: start: 19971201, end: 19971220
  4. NIMODIPINE [Concomitant]
     Dosage: 60 MG, 1X/DAY
     Route: 048
     Dates: start: 19971210
  5. ACETAMINOPHEN W/ CODEINE [Concomitant]
     Dosage: UNK
     Dates: start: 19971205, end: 19971208

REACTIONS (1)
  - STEVENS-JOHNSON SYNDROME [None]
